FAERS Safety Report 25468962 (Version 3)
Quarter: 2025Q3

REPORT INFORMATION
  Report Type: Spontaneous
  Country: EU (occurrence: EU)
  Receive Date: 20250623
  Receipt Date: 20250707
  Transmission Date: 20251021
  Serious: Yes (Hospitalization, Other)
  Sender: MYLAN
  Company Number: EU-TOWA-202502582

PATIENT
  Age: 81 Year
  Sex: Female

DRUGS (1)
  1. ESOMEPRAZOLE [Suspect]
     Active Substance: ESOMEPRAZOLE
     Indication: Product used for unknown indication

REACTIONS (5)
  - Stress cardiomyopathy [Recovered/Resolved]
  - Hypomagnesaemia [Recovered/Resolved]
  - Acute myocardial infarction [Recovered/Resolved]
  - Syncope [Recovered/Resolved]
  - Generalised tonic-clonic seizure [Recovered/Resolved]
